FAERS Safety Report 10344526 (Version 8)
Quarter: 2016Q2

REPORT INFORMATION
  Report Type: Report from Study
  Country: GT (occurrence: GT)
  Receive Date: 20140728
  Receipt Date: 20160518
  Transmission Date: 20160815
  Serious: Yes (Disabling, Other)
  Sender: FDA-Public Use
  Company Number: PHHY2014GT073872

PATIENT
  Age: 41 Year
  Sex: Female
  Weight: 77 kg

DRUGS (2)
  1. EUTIROX [Concomitant]
     Active Substance: LEVOTHYROXINE SODIUM
     Indication: HYPOTHYROIDISM
     Dosage: 50 MG, QD
     Route: 048
  2. GILENYA [Suspect]
     Active Substance: FINGOLIMOD HYDROCHLORIDE
     Indication: MULTIPLE SCLEROSIS
     Dosage: 0.5 MG, QD (AFTER BREAKFAST)
     Route: 048
     Dates: start: 201401

REACTIONS (18)
  - Multiple sclerosis relapse [Not Recovered/Not Resolved]
  - Diplopia [Not Recovered/Not Resolved]
  - Dysgraphia [Not Recovered/Not Resolved]
  - Irregular sleep phase [Not Recovered/Not Resolved]
  - Headache [Unknown]
  - Ocular discomfort [Unknown]
  - Eye pain [Unknown]
  - Somnolence [Not Recovered/Not Resolved]
  - Visual impairment [Recovering/Resolving]
  - Optic neuritis [Unknown]
  - Hernia [Unknown]
  - Speech disorder [Not Recovered/Not Resolved]
  - Ophthalmoplegia [Not Recovered/Not Resolved]
  - Memory impairment [Not Recovered/Not Resolved]
  - Micturition urgency [Not Recovered/Not Resolved]
  - Fatigue [Not Recovered/Not Resolved]
  - Hypoacusis [Not Recovered/Not Resolved]
  - Abnormal sensation in eye [Unknown]

NARRATIVE: CASE EVENT DATE: 201401
